FAERS Safety Report 7355944-8 (Version None)
Quarter: 2011Q1

REPORT INFORMATION
  Report Type: 
  Country: None (occurrence: None)
  Receive Date: 20110310
  Receipt Date: 20110310
  Transmission Date: 20110831
  Serious: Yes (Other)
  Sender: FDA-Public Use
  Company Number: None

PATIENT

DRUGS (1)
  1. MUCINEX DM [Suspect]

REACTIONS (3)
  - HAEMATOCHEZIA [None]
  - ABDOMINAL PAIN UPPER [None]
  - DIZZINESS [None]
